FAERS Safety Report 10592687 (Version 2)
Quarter: 2014Q4

REPORT INFORMATION
  Report Type: Report from Study
  Country: US (occurrence: US)
  Receive Date: 20141119
  Receipt Date: 20141121
  Transmission Date: 20150529
  Serious: Yes (Hospitalization)
  Sender: FDA-Public Use
  Company Number: US-009507513-1411USA005674

PATIENT
  Age: 55 Year
  Sex: Male
  Weight: 61.8 kg

DRUGS (6)
  1. CYTARABINE. [Suspect]
     Active Substance: CYTARABINE
     Indication: ACUTE MYELOID LEUKAEMIA
     Dosage: 750 MG/M2, QD CONTINOUS IV ON DAY 4 TO 6
     Route: 042
     Dates: start: 20140608, end: 20140609
  2. CYTARABINE. [Suspect]
     Active Substance: CYTARABINE
     Dosage: 1500 MG/M2, QD CONTINOUS IV INFUSION ON DAYS 4-7
     Route: 042
     Dates: start: 20140210, end: 20140213
  3. IDARUBICIN [Suspect]
     Active Substance: IDARUBICIN
     Dosage: 12 MG/M2, QD OVER 15 MINS ON DAY 4 TO 6
     Route: 042
     Dates: start: 20140210, end: 20140212
  4. VORINOSTAT [Suspect]
     Active Substance: VORINOSTAT
     Dosage: UNK
     Route: 048
     Dates: start: 20140207, end: 20140209
  5. IDARUBICIN [Suspect]
     Active Substance: IDARUBICIN
     Indication: ACUTE MYELOID LEUKAEMIA
     Dosage: 8MG/M2/DAY OVER 15 MINUTES ON DAY 4-5
     Route: 042
     Dates: start: 20140608, end: 20140608
  6. VORINOSTAT [Suspect]
     Active Substance: VORINOSTAT
     Indication: ACUTE MYELOID LEUKAEMIA
     Dosage: UNK
     Route: 048
     Dates: start: 20140605, end: 20140606

REACTIONS (1)
  - Colitis [Recovered/Resolved]

NARRATIVE: CASE EVENT DATE: 20140616
